FAERS Safety Report 21200661 (Version 9)
Quarter: 2023Q1

REPORT INFORMATION
  Report Type: Report from Study
  Country: FR (occurrence: FR)
  Receive Date: 20220811
  Receipt Date: 20230103
  Transmission Date: 20230418
  Serious: Yes (Other)
  Sender: FDA-Public Use
  Company Number: FR-ABBVIE-22K-056-4499930-00

PATIENT
  Age: 79 Year
  Sex: Female

DRUGS (12)
  1. CARBIDOPA\LEVODOPA [Suspect]
     Active Substance: CARBIDOPA\LEVODOPA
     Indication: Parkinson^s disease
     Dosage: CONTINUOUS FLOW RATE 4.5 ML/H
     Route: 050
     Dates: start: 202207, end: 20220808
  2. CARBIDOPA\LEVODOPA [Suspect]
     Active Substance: CARBIDOPA\LEVODOPA
     Dosage: MORNING DOSE 12ML, CONTINUOUS DOSE 2,2 ML/H FROM 6:30 TO 20:00, EXTRA DOSE 3 ML, REF PER : 30 MINS
     Route: 050
     Dates: start: 20221230
  3. CARBIDOPA\LEVODOPA [Suspect]
     Active Substance: CARBIDOPA\LEVODOPA
     Dosage: CONTINUOUS FLOW RATE  2.ML/H
     Route: 050
     Dates: start: 20221004, end: 20221212
  4. CARBIDOPA\LEVODOPA [Suspect]
     Active Substance: CARBIDOPA\LEVODOPA
     Dosage: CONTINUOUS FLOW RATE 4.2 ML/H
     Route: 050
     Dates: start: 20220808, end: 20220816
  5. CARBIDOPA\LEVODOPA [Suspect]
     Active Substance: CARBIDOPA\LEVODOPA
     Dosage: CONTINUOUS FLOW RATE: 2.2 ML/H
     Route: 050
     Dates: start: 20221213, end: 20221228
  6. CARBIDOPA\LEVODOPA [Suspect]
     Active Substance: CARBIDOPA\LEVODOPA
     Dosage: CONTINUOUS FLOW RATE 3.5 ML/H
     Route: 050
     Dates: start: 20220816, end: 20220818
  7. CARBIDOPA\LEVODOPA [Suspect]
     Active Substance: CARBIDOPA\LEVODOPA
     Dosage: CONTINUOUS FLOW RATE 3 ML/H
     Route: 050
     Dates: start: 20220818, end: 20220823
  8. CARBIDOPA\LEVODOPA [Suspect]
     Active Substance: CARBIDOPA\LEVODOPA
     Dosage: CONTINUOUS FLOW RATE 2.5 ML/H
     Route: 050
     Dates: start: 20220823, end: 20220906
  9. CARBIDOPA\LEVODOPA [Suspect]
     Active Substance: CARBIDOPA\LEVODOPA
     Dosage: CONTINUOUS FLOW RATE 4 ML/H
     Route: 050
     Dates: start: 20220816, end: 20220816
  10. CARBIDOPA\LEVODOPA [Suspect]
     Active Substance: CARBIDOPA\LEVODOPA
     Dosage: CONTINUOUS FLOW RATE 2.5 ML/H
     Route: 050
     Dates: start: 20221229, end: 20221229
  11. CARBIDOPA\LEVODOPA [Suspect]
     Active Substance: CARBIDOPA\LEVODOPA
     Dosage: CONTINUOUS FLOW RATE :2.2ML/H
     Route: 050
     Dates: start: 20220906, end: 20221004
  12. BENSERAZIDE HYDROCHLORIDE\LEVODOPA [Concomitant]
     Active Substance: BENSERAZIDE HYDROCHLORIDE\LEVODOPA
     Indication: Product used for unknown indication
     Dosage: 3 HALF-TABLETS

REACTIONS (4)
  - Suicidal ideation [Not Recovered/Not Resolved]
  - Dyskinesia [Recovering/Resolving]
  - Device alarm issue [Unknown]
  - Gastrointestinal fungal infection [Unknown]

NARRATIVE: CASE EVENT DATE: 20220801
